FAERS Safety Report 20466851 (Version 3)
Quarter: 2022Q2

REPORT INFORMATION
  Report Type: Report from Study
  Country: FR (occurrence: FR)
  Receive Date: 20220214
  Receipt Date: 20220408
  Transmission Date: 20220720
  Serious: Yes (Hospitalization, Other)
  Sender: FDA-Public Use
  Company Number: FR-AMGEN-FRACT2022022653

PATIENT
  Age: 51 Year
  Sex: Male
  Weight: 76 kg

DRUGS (22)
  1. PANITUMUMAB [Suspect]
     Active Substance: PANITUMUMAB
     Indication: Colorectal cancer
     Dosage: UNK/ FIRST DAY OF FIRST CYCLE
     Route: 065
     Dates: start: 20211103
  2. PANITUMUMAB [Suspect]
     Active Substance: PANITUMUMAB
     Dosage: UNK, SUSPENDED DUE TO HYPOMAGNESAEMIA
     Route: 065
     Dates: end: 20211201
  3. PANITUMUMAB [Suspect]
     Active Substance: PANITUMUMAB
     Dosage: UNK, RESUMED AS HYPOMAGNESAEMIA RETURNED TO GRADE 1
     Route: 065
     Dates: start: 20211229
  4. PANITUMUMAB [Suspect]
     Active Substance: PANITUMUMAB
     Dosage: 456 MILLIGRAM, QD (CUMULATIVE DOSE: 2274 MG)
     Route: 065
  5. FLUOROURACIL [Suspect]
     Active Substance: FLUOROURACIL
     Indication: Colorectal cancer
     Dosage: UNK/ FIRST DAY OF FIRST CYCLE
     Route: 065
     Dates: start: 20211103
  6. FLUOROURACIL [Suspect]
     Active Substance: FLUOROURACIL
     Dosage: 4656 MILLIGRAM, QD (CUMULATIVE DOSE: 32568 MG)
     Route: 065
     Dates: end: 20220126
  7. FLUOROURACIL [Suspect]
     Active Substance: FLUOROURACIL
     Dosage: UNK (BOLUS)/ FIRST DAY OF FIRST CYCLE
     Route: 040
     Dates: start: 20211103
  8. FLUOROURACIL [Suspect]
     Active Substance: FLUOROURACIL
     Dosage: 776 MILLIGRAM, QD (CUMULATIVE DOSE: 5428 MG)
     Route: 040
     Dates: end: 20220126
  9. OXALIPLATIN [Suspect]
     Active Substance: OXALIPLATIN
     Indication: Colorectal cancer
     Dosage: UNK/ FIRST DAY OF FIRST CYCLE
     Route: 065
     Dates: start: 20211103
  10. OXALIPLATIN [Suspect]
     Active Substance: OXALIPLATIN
     Dosage: 165 MILLIGRAM, QD (CUMULATIVE DOSE: 1153 MG)
     Route: 065
     Dates: end: 20220126
  11. LEVOLEUCOVORIN CALCIUM [Suspect]
     Active Substance: LEVOLEUCOVORIN CALCIUM
     Indication: Colorectal cancer
     Dosage: UNK/ FIRST DAY OF FIRST CYCLE
     Route: 065
     Dates: start: 20211103
  12. LEVOLEUCOVORIN CALCIUM [Suspect]
     Active Substance: LEVOLEUCOVORIN CALCIUM
     Dosage: 388 MILLIGRAM, QD (CUMULATIVE DOSE: 2714 MG)
     Route: 065
     Dates: end: 20220126
  13. AUGMENTIN [Suspect]
     Active Substance: AMOXICILLIN\CLAVULANATE POTASSIUM
     Indication: Tooth abscess
     Dosage: 1 GRAM, BID
     Route: 065
     Dates: start: 20220131
  14. HYDROCHLOROTHIAZIDE\IRBESARTAN [Concomitant]
     Active Substance: HYDROCHLOROTHIAZIDE\IRBESARTAN
     Dosage: 1 DOSAGE FORM, QD IN MORNING
  15. PRAVASTATIN [Concomitant]
     Active Substance: PRAVASTATIN
     Dosage: 10 MILLIGRAM, QD
  16. TOUJEO [Concomitant]
     Active Substance: INSULIN GLARGINE
     Dosage: 21 UNIT, QD, IN EVENING
  17. APIDRA [Concomitant]
     Active Substance: INSULIN GLULISINE
     Dosage: UNK UNK, AS NECESSARY/ DEPENDING ON DEXTROSE
  18. MAGNESIUM CARBONATE [Concomitant]
     Active Substance: MAGNESIUM CARBONATE
     Dosage: 2 DOSAGE FORM, QD
     Dates: start: 201201
  19. HEC [Concomitant]
     Dosage: 2 DROP, BID/ 1 DROP IN EACH NOSTRIL MORNING AND EVENING
     Route: 045
  20. REFRESH CELLUVISC [Concomitant]
     Active Substance: CARBOXYMETHYLCELLULOSE SODIUM
     Dosage: 2 DROP, TID/ 1 DROP IN EACH EYE 4 TIMES A DAY
  21. RETINOL [Concomitant]
     Active Substance: RETINOL
     Dosage: APPLY ONCE IN THE EVENING AT BEDTIME
     Route: 061
  22. OMEPRAZOLE [Concomitant]
     Active Substance: OMEPRAZOLE
     Dosage: 20 MILLIGRAM, QD
     Dates: start: 201201

REACTIONS (3)
  - Renal failure [Recovered/Resolved]
  - Dehydration [Recovered/Resolved]
  - Diarrhoea [Recovered/Resolved]

NARRATIVE: CASE EVENT DATE: 20211104
